FAERS Safety Report 9207138 (Version 1)
Quarter: 2013Q1

REPORT INFORMATION
  Report Type: Spontaneous
  Country: US (occurrence: None)
  Receive Date: 20120731
  Receipt Date: 20120731
  Transmission Date: 20140127
  Serious: No
  Sender: FDA-Public Use
  Company Number: 2012MZ000301

PATIENT
  Age: 52 Year
  Sex: Female

DRUGS (14)
  1. XEOMIN [Suspect]
     Indication: FACE LIFT
     Dosage: 50 U
     Dates: start: 20120208, end: 20120208
  2. XEOMIN [Suspect]
     Indication: SKIN WRINKLING
     Dosage: 50 U
     Dates: start: 20120208, end: 20120208
  3. RADIESSE [Suspect]
     Dates: start: 20120208, end: 20120208
  4. RADIESSE [Suspect]
     Dates: start: 20120208, end: 20120208
  5. RADIESSE [Suspect]
     Dates: start: 20120208, end: 20120208
  6. NEXIUM /01479302/ [Concomitant]
  7. VALIUM /00017001/ [Concomitant]
  8. COBIAN-S [Concomitant]
  9. WELLBUTRIN [Concomitant]
  10. FLEXERIL /00428402/ [Concomitant]
  11. ALL OTHER THERAPEUTIC PRODUCTS [Concomitant]
  12. PROZAC [Concomitant]
  13. HYDROCODONE [Concomitant]
  14. OFLOXACIN [Concomitant]

REACTIONS (7)
  - Influenza like illness [None]
  - Eye pain [None]
  - Dry eye [None]
  - Injection site pruritus [None]
  - Injection site swelling [None]
  - Eyelid ptosis [None]
  - Off label use [None]
